FAERS Safety Report 6085724-5 (Version None)
Quarter: 2009Q1

REPORT INFORMATION
  Report Type: 
  Country: None (occurrence: None)
  Receive Date: 20090220
  Receipt Date: 20090211
  Transmission Date: 20090719
  Serious: Yes (Other)
  Sender: FDA-Public Use
  Company Number: PHHY2009PT02030

PATIENT
  Sex: Female

DRUGS (2)
  1. EXJADE [Suspect]
     Indication: MYELODYSPLASTIC SYNDROME
     Dosage: 250-1000 MG/DAY
     Route: 048
     Dates: start: 20081029
  2. EXJADE [Suspect]
     Dosage: 10 MG/KG
     Dates: start: 20090122

REACTIONS (5)
  - CONSTIPATION [None]
  - GASTRIC DISORDER [None]
  - HAEMOGLOBIN DECREASED [None]
  - PROTEINURIA [None]
  - URINARY TRACT INFECTION [None]
